FAERS Safety Report 16113055 (Version 1)
Quarter: 2019Q1

REPORT INFORMATION
  Report Type: Report from Study
  Country: US (occurrence: US)
  Receive Date: 20190325
  Receipt Date: 20190325
  Transmission Date: 20190418
  Serious: Yes (Other)
  Sender: FDA-Public Use
  Company Number: US-BRISTOL-MYERS SQUIBB COMPANY-BMS-2019-019198

PATIENT
  Age: 68 Year
  Sex: Female

DRUGS (3)
  1. NIVOLUMAB [Suspect]
     Active Substance: NIVOLUMAB
     Indication: PRODUCT USED FOR UNKNOWN INDICATION
     Dosage: UNK, Q3WK
     Route: 042
     Dates: start: 20190307
  2. IPILIMUMAB [Suspect]
     Active Substance: IPILIMUMAB
     Indication: MALIGNANT MELANOMA
     Dosage: UNK, Q3WK
     Route: 042
     Dates: start: 20190214
  3. NIVOLUMAB [Suspect]
     Active Substance: NIVOLUMAB
     Indication: MALIGNANT MELANOMA
     Dosage: UNK UNK, Q3WK
     Route: 042
     Dates: start: 20190214

REACTIONS (17)
  - Dry eye [Recovering/Resolving]
  - Headache [Recovering/Resolving]
  - Decreased appetite [Recovering/Resolving]
  - Weight decreased [Recovering/Resolving]
  - Blood potassium increased [Unknown]
  - Fatigue [Recovering/Resolving]
  - Diarrhoea [Recovered/Resolved]
  - Musculoskeletal stiffness [Recovered/Resolved]
  - Eye discharge [Recovering/Resolving]
  - Cough [Recovering/Resolving]
  - Rash [Recovering/Resolving]
  - Corneal oedema [Recovering/Resolving]
  - Skin exfoliation [Recovering/Resolving]
  - Alopecia [Recovering/Resolving]
  - Pruritus [Recovering/Resolving]
  - Rash pruritic [Recovering/Resolving]
  - Mass [Recovering/Resolving]

NARRATIVE: CASE EVENT DATE: 20190215
